FAERS Safety Report 17584868 (Version 3)
Quarter: 2020Q3

REPORT INFORMATION
  Report Type: Spontaneous
  Country: PT (occurrence: PT)
  Receive Date: 20200326
  Receipt Date: 20200930
  Transmission Date: 20201102
  Serious: Yes (Hospitalization, Other)
  Sender: FDA-Public Use
  Company Number: PT-SA-2020SA072050

PATIENT

DRUGS (2)
  1. INSULIN GLARGINE [Suspect]
     Active Substance: INSULIN GLARGINE
     Indication: TYPE 1 DIABETES MELLITUS
     Dosage: INSULIN GLARGINE AND LISPRO (TOTAL DOSE ? 60 UNITS/DAY)
     Dates: end: 201908
  2. INSULIN LISPRO [Suspect]
     Active Substance: INSULIN LISPRO
     Indication: TYPE 1 DIABETES MELLITUS
     Dosage: INSULIN GLARGINE AND LISPRO (TOTAL DOSE ? 60 UNITS/DAY)
     Dates: end: 201908

REACTIONS (8)
  - Hypoglycaemia [Recovered/Resolved]
  - Drug ineffective [Recovered/Resolved]
  - Medication error [Unknown]
  - Diabetes mellitus inadequate control [Recovered/Resolved]
  - Blood insulin abnormal [Recovered/Resolved]
  - Insulin C-peptide abnormal [Recovered/Resolved]
  - Product administration interrupted [Unknown]
  - Treatment noncompliance [Unknown]

NARRATIVE: CASE EVENT DATE: 201908
